FAERS Safety Report 18170482 (Version 1)
Quarter: 2020Q3

REPORT INFORMATION
  Report Type: Spontaneous
  Country: US (occurrence: US)
  Receive Date: 20200819
  Receipt Date: 20200819
  Transmission Date: 20201103
  Serious: No
  Sender: FDA-Public Use
  Company Number: US-JNJFOC-20200823471

PATIENT

DRUGS (1)
  1. DURAGESIC [Suspect]
     Active Substance: FENTANYL
     Indication: PRODUCT USED FOR UNKNOWN INDICATION
     Dosage: 100 MICROGRAM USING 2 PATCHES EVERY ^2 DAYS, NOT 3 DAYS.
     Route: 062

REACTIONS (2)
  - Inappropriate schedule of product administration [Unknown]
  - Hypoacusis [Unknown]
